FAERS Safety Report 10030027 (Version 2)
Quarter: 2014Q1

REPORT INFORMATION
  Report Type: Spontaneous
  Country: US (occurrence: US)
  Receive Date: 20140323
  Receipt Date: 20140323
  Transmission Date: 20141002
  Serious: No
  Sender: FDA-Public Use
  Company Number: US-ALLERGAN-1304772US

PATIENT
  Age: 55 Year
  Sex: Female

DRUGS (6)
  1. LATISSE 0.03% [Suspect]
     Indication: GROWTH OF EYELASHES
  2. ALLEGRA                            /01314201/ [Concomitant]
     Indication: SEASONAL ALLERGY
     Dosage: UNK
  3. SINGULAIR                          /01362601/ [Concomitant]
     Indication: SEASONAL ALLERGY
     Dosage: UNK
  4. ADVAIR [Concomitant]
     Indication: SEASONAL ALLERGY
     Dosage: UNK
     Route: 055
  5. FLONASE [Concomitant]
     Indication: SEASONAL ALLERGY
     Dosage: UNK
  6. ESTROGEN NOS [Concomitant]
     Indication: HORMONE REPLACEMENT THERAPY
     Dosage: UNK

REACTIONS (7)
  - Lid margin discharge [Recovering/Resolving]
  - Wrong technique in drug usage process [Unknown]
  - Hypersensitivity [Recovering/Resolving]
  - Scleral hyperaemia [Recovering/Resolving]
  - Eyelids pruritus [Recovering/Resolving]
  - Eye irritation [Recovering/Resolving]
  - Eye pruritus [Recovering/Resolving]
